FAERS Safety Report 8271622-5 (Version None)
Quarter: 2012Q2

REPORT INFORMATION
  Report Type: 
  Country: None (occurrence: None)
  Receive Date: 20120410
  Receipt Date: 20120402
  Transmission Date: 20120825
  Serious: Yes (Death, Hospitalization)
  Sender: FDA-Public Use
  Company Number: US-GLAXOSMITHKLINE-A0972019A

PATIENT
  Age: 71 Year
  Sex: Female

DRUGS (12)
  1. LORAZEPAM [Concomitant]
  2. PANCRELIPASE [Concomitant]
  3. NORCO [Concomitant]
  4. ZOLPIDEM [Concomitant]
  5. FLUTICASONE FUROATE [Concomitant]
  6. MORPHINE SULFATE [Concomitant]
  7. MORPHINE SULFATE [Concomitant]
  8. LISINOPRIL [Concomitant]
  9. COUMADIN [Concomitant]
  10. URSODIOL [Concomitant]
  11. ARIXTRA [Suspect]
     Indication: PULMONARY EMBOLISM
     Dosage: 5MG PER DAY
     Route: 058
     Dates: start: 20120301
  12. ALPRAZOLAM [Concomitant]

REACTIONS (1)
  - LUNG CANCER METASTATIC [None]
